FAERS Safety Report 6831414-8 (Version None)
Quarter: 2010Q3

REPORT INFORMATION
  Report Type: 
  Country: None (occurrence: None)
  Receive Date: 20100712
  Receipt Date: 20100628
  Transmission Date: 20110219
  Serious: Yes (Hospitalization)
  Sender: FDA-Public Use
  Company Number: US-TEVA-239416USA

PATIENT
  Age: 3 Year
  Sex: Female

DRUGS (1)
  1. PREDNISOLONE [Suspect]

REACTIONS (3)
  - ASTHMA PROPHYLAXIS [None]
  - OTITIS MEDIA [None]
  - PAIN [None]
